FAERS Safety Report 5836518-4 (Version None)
Quarter: 2008Q3

REPORT INFORMATION
  Report Type: 
  Country: None (occurrence: None)
  Receive Date: 20080807
  Receipt Date: 20080804
  Transmission Date: 20090109
  Serious: Yes (Death)
  Sender: FDA-Public Use
  Company Number: US-ASTRAZENECA-2008UW15401

PATIENT
  Sex: Male

DRUGS (2)
  1. TOPROL-XL [Suspect]
     Route: 048
  2. CRESTOR [Suspect]
     Route: 048

REACTIONS (2)
  - DEATH [None]
  - MYALGIA [None]
